FAERS Safety Report 14647000 (Version 1)
Quarter: 2018Q1

REPORT INFORMATION
  Report Type: Spontaneous
  Country: US (occurrence: US)
  Receive Date: 20180316
  Receipt Date: 20180316
  Transmission Date: 20180509
  Serious: Yes (Hospitalization, Other)
  Sender: FDA-Public Use
  Company Number: US-WEST-WARD PHARMACEUTICALS CORP.-US-H14001-18-01793

PATIENT
  Age: 29 Year
  Sex: Male

DRUGS (4)
  1. 6-MERCAPTOPURINE [Suspect]
     Active Substance: MERCAPTOPURINE
     Indication: AUTOIMMUNE HEPATITIS
     Dosage: ()
     Route: 065
  2. BUDESONIDE. [Interacting]
     Active Substance: BUDESONIDE
     Indication: AUTOIMMUNE HEPATITIS
     Dosage: ()
     Route: 065
  3. MESALAZINE [Interacting]
     Active Substance: MESALAMINE
     Indication: COLITIS ULCERATIVE
     Dosage: ()
     Route: 065
  4. SIROLIMUS. [Concomitant]
     Active Substance: SIROLIMUS
     Indication: AUTOIMMUNE HEPATITIS
     Dosage: ()
     Route: 065

REACTIONS (6)
  - Cellulitis [Unknown]
  - Febrile neutropenia [Unknown]
  - Haemorrhagic diathesis [Unknown]
  - Bone marrow failure [Unknown]
  - Pancytopenia [Recovering/Resolving]
  - Potentiating drug interaction [Unknown]
